FAERS Safety Report 6395235-5 (Version None)
Quarter: 2009Q4

REPORT INFORMATION
  Report Type: 
  Country: None (occurrence: None)
  Receive Date: 20091009
  Receipt Date: 20090929
  Transmission Date: 20100525
  Serious: Yes (Hospitalization, Other)
  Sender: FDA-Public Use
  Company Number: US-ELI_LILLY_AND_COMPANY-US200909006742

PATIENT
  Sex: Female
  Weight: 86.168 kg

DRUGS (9)
  1. BYETTA [Suspect]
     Indication: TYPE 2 DIABETES MELLITUS
     Dosage: 5 UG, 2/D
     Route: 058
     Dates: start: 20080101, end: 20080101
  2. BYETTA [Suspect]
     Dosage: 5 UG, 2/D
     Route: 058
     Dates: start: 20090101
  3. NEXIUM [Concomitant]
     Indication: GASTROOESOPHAGEAL REFLUX DISEASE
     Dosage: 40 MG, DAILY (1/D)
     Route: 048
  4. CRESTOR /01588602/ [Concomitant]
     Dosage: 10 MG, EACH EVENING
     Route: 048
  5. LEVOTHYROXINE [Concomitant]
     Dosage: 88 UG, DAILY (1/D)
     Route: 048
  6. ALPRAZOLAM [Concomitant]
     Dosage: 1 MG, 3/D
     Route: 048
  7. MULTIVITAMINS PLUS IRON [Concomitant]
  8. FUROSEMIDE [Concomitant]
     Dosage: 40 MG, AS NEEDED
     Route: 048
  9. POTASSIUM CHLORIDE [Concomitant]
     Dosage: UNK, AS NEEDED

REACTIONS (14)
  - BLADDER PROLAPSE [None]
  - BLADDER SPASM [None]
  - BLOOD GLUCOSE INCREASED [None]
  - CYSTITIS [None]
  - DRUG DOSE OMISSION [None]
  - DYSURIA [None]
  - HEADACHE [None]
  - MALAISE [None]
  - NAUSEA [None]
  - OFF LABEL USE [None]
  - PROCEDURAL PAIN [None]
  - RECTAL FISSURE [None]
  - UTERINE PROLAPSE [None]
  - VAGINAL LACERATION [None]
